FAERS Safety Report 4449119-X (Version None)
Quarter: 2004Q3

REPORT INFORMATION
  Report Type: 
  Country: None (occurrence: None)
  Receive Date: 20040910
  Receipt Date: 20040827
  Transmission Date: 20050211
  Serious: Yes (Death)
  Sender: FDA-Public Use
  Company Number: USA-2004-0016551

PATIENT
  Age: 70 Year
  Sex: Female

DRUGS (5)
  1. MS CONTIN [Suspect]
     Indication: PAIN
     Dosage: 15 MG Q12H
     Dates: start: 20040729
  2. NORCO [Suspect]
     Indication: PAIN
  3. ATENOLOL [Concomitant]
  4. FOSAMAX [Concomitant]
  5. HYDROCHLORIDE) [Concomitant]

REACTIONS (6)
  - CONSTIPATION [None]
  - FAECALOMA [None]
  - HYPERTENSION [None]
  - INTESTINAL OBSTRUCTION [None]
  - PULMONARY EMBOLISM [None]
  - THROMBOSIS [None]
